APPROVED DRUG PRODUCT: EPOPROSTENOL SODIUM
Active Ingredient: EPOPROSTENOL SODIUM
Strength: EQ 0.5MG BASE/VIAL
Dosage Form/Route: INJECTABLE;INJECTION
Application: A210473 | Product #001 | TE Code: AP2
Applicant: SUN PHARMACEUTICAL INDUSTRIES LTD
Approved: Jan 15, 2021 | RLD: No | RS: Yes | Type: RX